FAERS Safety Report 10379244 (Version 2)
Quarter: 2014Q3

REPORT INFORMATION
  Report Type: Report from Study
  Country: JP (occurrence: JP)
  Receive Date: 20140812
  Receipt Date: 20140812
  Transmission Date: 20150326
  Serious: Yes (Hospitalization)
  Sender: FDA-Public Use
  Company Number: JP-ASTRAZENECA-2012SE82166

PATIENT
  Age: 79 Year
  Sex: Female

DRUGS (30)
  1. CRESTOR [Suspect]
     Active Substance: ROSUVASTATIN CALCIUM
     Indication: HYPERCHOLESTEROLAEMIA
     Route: 048
     Dates: start: 20120111
  2. JANUVIA [Concomitant]
     Active Substance: SITAGLIPTIN PHOSPHATE
     Indication: DIABETES MELLITUS
     Route: 065
     Dates: start: 20121207, end: 20121211
  3. JANUVIA [Concomitant]
     Active Substance: SITAGLIPTIN PHOSPHATE
     Indication: DIABETES MELLITUS
     Route: 065
     Dates: start: 20121212, end: 20130507
  4. KAYEXALATE [Concomitant]
     Active Substance: SODIUM POLYSTYRENE SULFONATE
     Dosage: 9.81 GRAM DAILY
     Route: 048
     Dates: start: 20140723
  5. LANTUS [Concomitant]
     Active Substance: INSULIN GLARGINE
     Indication: DIABETES MELLITUS
     Route: 065
     Dates: start: 20121203, end: 20131203
  6. JANUVIA [Concomitant]
     Active Substance: SITAGLIPTIN PHOSPHATE
     Indication: DIABETES MELLITUS
     Route: 065
     Dates: start: 20130508, end: 20140318
  7. LASIX [Concomitant]
     Active Substance: FUROSEMIDE
     Indication: HYPERTENSION
     Route: 065
     Dates: start: 20121214, end: 20140722
  8. FESIN [Concomitant]
     Active Substance: IRON SUCROSE
     Route: 065
     Dates: start: 20121211, end: 20121214
  9. FEBURIC [Concomitant]
     Active Substance: FEBUXOSTAT
     Route: 048
     Dates: start: 20140528
  10. AMARYL [Concomitant]
     Active Substance: GLIMEPIRIDE
     Indication: DIABETES MELLITUS
     Route: 065
     Dates: start: 20070227
  11. AMARYL [Concomitant]
     Active Substance: GLIMEPIRIDE
     Indication: DIABETES MELLITUS
     Route: 065
     Dates: start: 20090311, end: 20121203
  12. CARDENALIN [Concomitant]
     Active Substance: DOXAZOSIN MESYLATE
     Indication: HYPERTENSION
     Route: 065
     Dates: start: 20120208
  13. LANTUS [Concomitant]
     Active Substance: INSULIN GLARGINE
     Indication: DIABETES MELLITUS
     Route: 065
     Dates: start: 20131225, end: 20140624
  14. NIFEDIPINE CR [Concomitant]
     Indication: HYPERTENSION
     Route: 048
     Dates: start: 20140723
  15. LOXOPROFEN [Concomitant]
     Active Substance: LOXOPROFEN
     Route: 065
     Dates: start: 20120315, end: 20120317
  16. LANTUS [Concomitant]
     Active Substance: INSULIN GLARGINE
     Indication: DIABETES MELLITUS
     Route: 065
     Dates: start: 20121212, end: 20131224
  17. LASIX [Concomitant]
     Active Substance: FUROSEMIDE
     Indication: HYPERTENSION
     Route: 065
     Dates: start: 20121205, end: 20121213
  18. ATANAAL [Concomitant]
     Route: 065
     Dates: start: 20121203, end: 20121203
  19. AVELOX [Concomitant]
     Active Substance: MOXIFLOXACIN HYDROCHLORIDE
     Route: 048
     Dates: start: 20121204, end: 20121208
  20. ADALAT CC [Concomitant]
     Active Substance: NIFEDIPINE
     Indication: HYPERTENSION
     Route: 065
     Dates: start: 20101117, end: 20140624
  21. LASIX [Concomitant]
     Active Substance: FUROSEMIDE
     Indication: HYPERTENSION
     Route: 065
     Dates: start: 20121204, end: 20121204
  22. SEIBULE [Concomitant]
     Active Substance: MIGLITOL
     Indication: DIABETES MELLITUS
     Route: 065
     Dates: start: 20080423, end: 20121203
  23. PREMINENT [Concomitant]
     Active Substance: HYDROCHLOROTHIAZIDE\LOSARTAN POTASSIUM
     Indication: HYPERTENSION
     Route: 048
     Dates: start: 20090114, end: 20131126
  24. LANTUS [Concomitant]
     Active Substance: INSULIN GLARGINE
     Indication: DIABETES MELLITUS
     Route: 065
     Dates: start: 20121207
  25. LANTUS [Concomitant]
     Active Substance: INSULIN GLARGINE
     Indication: DIABETES MELLITUS
     Route: 065
     Dates: start: 20121209, end: 20121211
  26. NIFEDIPINE CR [Concomitant]
     Indication: HYPERTENSION
     Route: 048
     Dates: start: 20140625
  27. LOXONIN [Concomitant]
     Active Substance: LOXOPROFEN SODIUM
     Route: 062
     Dates: start: 20120315, end: 201203
  28. LANTUS [Concomitant]
     Active Substance: INSULIN GLARGINE
     Indication: DIABETES MELLITUS
     Route: 065
     Dates: start: 20140625
  29. LASIX [Concomitant]
     Active Substance: FUROSEMIDE
     Indication: HYPERTENSION
     Route: 065
     Dates: start: 20121203, end: 20121213
  30. KREMEZIN [Concomitant]
     Active Substance: ACTIVATED CHARCOAL
     Dosage: FINE GRAIN, 4 GM DAILY
     Route: 048
     Dates: start: 20140319

REACTIONS (4)
  - Femur fracture [Recovering/Resolving]
  - Cardiac failure acute [Recovered/Resolved]
  - Renal failure chronic [Recovering/Resolving]
  - Bronchitis [Recovered/Resolved]

NARRATIVE: CASE EVENT DATE: 20120315
